FAERS Safety Report 14390387 (Version 6)
Quarter: 2018Q4

REPORT INFORMATION
  Report Type: Spontaneous
  Country: JP (occurrence: JP)
  Receive Date: 20180116
  Receipt Date: 20181228
  Transmission Date: 20190204
  Serious: Yes (Death, Life-Threatening, Other)
  Sender: FDA-Public Use
  Company Number: JP-009507513-1801JPN001165J

PATIENT
  Age: 75 Year
  Sex: Male

DRUGS (2)
  1. KEYTRUDA [Suspect]
     Active Substance: PEMBROLIZUMAB
     Dosage: 200 MG, Q3W
     Route: 041
     Dates: start: 20171207, end: 20171228
  2. KEYTRUDA [Suspect]
     Active Substance: PEMBROLIZUMAB
     Indication: LUNG ADENOCARCINOMA
     Dosage: 200 MG, Q3W
     Route: 041
     Dates: start: 20170802, end: 20171026

REACTIONS (10)
  - Cardio-respiratory arrest [Fatal]
  - Fulminant type 1 diabetes mellitus [Fatal]
  - Hypoaesthesia [Unknown]
  - Hyperglycaemia [Unknown]
  - Ketoacidosis [Unknown]
  - Gait disturbance [Unknown]
  - Myocarditis [Fatal]
  - Hyperkalaemia [Unknown]
  - Renal failure [Unknown]
  - Hypothyroidism [Not Recovered/Not Resolved]

NARRATIVE: CASE EVENT DATE: 2017
